FAERS Safety Report 5652344-3 (Version None)
Quarter: 2008Q1

REPORT INFORMATION
  Report Type: 
  Country: None (occurrence: None)
  Receive Date: 20080305
  Receipt Date: 20080305
  Transmission Date: 20080703
  Serious: Yes (Disabling, Other)
  Sender: FDA-Public Use
  Company Number: None

PATIENT
  Age: 44 Year
  Sex: Male
  Weight: 104.3273 kg

DRUGS (4)
  1. GABAPENTIN [Suspect]
     Dosage: 600MG PO BID
     Route: 048
  2. ASPIRIN [Concomitant]
  3. METFORMIN [Concomitant]
  4. LISINOPRIL [Concomitant]

REACTIONS (7)
  - EARLY SATIETY [None]
  - FOOD INTOLERANCE [None]
  - IMPAIRED GASTRIC EMPTYING [None]
  - NAUSEA [None]
  - SENSORY DISTURBANCE [None]
  - VOMITING [None]
  - WEIGHT DECREASED [None]
